FAERS Safety Report 8954716 (Version 1)
Quarter: 2012Q4

REPORT INFORMATION
  Report Type: 
  Country: US (occurrence: US)
  Receive Date: 20121210
  Receipt Date: 20121210
  Transmission Date: 20130627
  Serious: Yes (Other)
  Sender: FDA-Public Use
  Company Number: US-009507513-1212USA002008

PATIENT
  Age: 59 Year
  Sex: Male

DRUGS (3)
  1. VICTRELIS [Suspect]
     Indication: HEPATITIS C
     Dosage: 800 mg, tid
     Route: 048
     Dates: start: 20120521, end: 20121106
  2. RIBAVIRIN [Suspect]
     Dosage: UNK
     Dates: end: 20121121
  3. PEGASYS [Suspect]
     Dosage: UNK
     Dates: end: 20121121

REACTIONS (1)
  - Rash [Recovered/Resolved]
